FAERS Safety Report 16526907 (Version 1)
Quarter: 2019Q3

REPORT INFORMATION
  Report Type: Spontaneous
  Country: JP (occurrence: JP)
  Receive Date: 20190703
  Receipt Date: 20190703
  Transmission Date: 20191004
  Serious: Yes (Other)
  Sender: FDA-Public Use
  Company Number: JP-ELI_LILLY_AND_COMPANY-JP201906014845

PATIENT
  Age: 61 Year
  Sex: Female
  Weight: 38 kg

DRUGS (5)
  1. TEGAFUR [Concomitant]
     Active Substance: TEGAFUR
     Indication: COLON CANCER METASTATIC
     Dosage: UNK
  2. GIMERACIL [Concomitant]
     Active Substance: GIMERACIL
     Indication: COLON CANCER METASTATIC
     Dosage: UNK
  3. ERBITUX [Suspect]
     Active Substance: CETUXIMAB
     Indication: COLON CANCER METASTATIC
     Dosage: UNK UNK, UNKNOWN
     Route: 041
  4. OTERACIL [Concomitant]
     Active Substance: OTERACIL
     Indication: COLON CANCER METASTATIC
     Dosage: UNK
  5. OXALIPLATIN. [Concomitant]
     Active Substance: OXALIPLATIN
     Indication: COLON CANCER METASTATIC
     Dosage: UNK

REACTIONS (3)
  - Neuropathy peripheral [Unknown]
  - Platelet count decreased [Unknown]
  - Paronychia [Unknown]
